FAERS Safety Report 20889528 (Version 1)
Quarter: 2022Q2

REPORT INFORMATION
  Report Type: Spontaneous
  Country: US (occurrence: US)
  Receive Date: 20220530
  Receipt Date: 20220530
  Transmission Date: 20220720
  Serious: No
  Sender: FDA-Public Use
  Company Number: US-JNJFOC-20220556542

PATIENT

DRUGS (1)
  1. IMODIUM [Suspect]
     Active Substance: LOPERAMIDE HYDROCHLORIDE
     Indication: Diarrhoea
     Dosage: TOOK A IMODIUM TWO TABLETS, LIKE THE DIRECTIONS SAY, AFTER THE FIRST TIME, I HAD DIARRHEA. THE SECON
     Route: 048

REACTIONS (2)
  - Incorrect dose administered [Unknown]
  - Product residue present [Unknown]
